FAERS Safety Report 5502520-5 (Version None)
Quarter: 2007Q4

REPORT INFORMATION
  Report Type: 
  Country: None (occurrence: None)
  Receive Date: 20071030
  Receipt Date: 20071026
  Transmission Date: 20080405
  Serious: No
  Sender: FDA-Public Use
  Company Number: US-BOEHRINGER INGELHEIM PHARMACEUTICALS, INC.-2007-BP-20224BP

PATIENT
  Age: 60 Year
  Sex: Female

DRUGS (8)
  1. SPIRIVA [Suspect]
     Indication: CHRONIC OBSTRUCTIVE PULMONARY DISEASE
     Route: 055
     Dates: start: 20070820, end: 20070822
  2. SPIRIVA [Suspect]
     Indication: EMPHYSEMA
  3. PLAVIX [Concomitant]
  4. TOPROL-XL [Concomitant]
  5. ZESTRIL [Concomitant]
  6. ZOCOR [Concomitant]
  7. NEXIUM [Concomitant]
  8. ASPIRIN [Concomitant]

REACTIONS (2)
  - FEAR [None]
  - HEART RATE INCREASED [None]
